FAERS Safety Report 5374441-2 (Version None)
Quarter: 2007Q2

REPORT INFORMATION
  Report Type: 
  Country: None (occurrence: None)
  Receive Date: 20070629
  Receipt Date: 20070619
  Transmission Date: 20071010
  Serious: Yes (Other)
  Sender: FDA-Public Use
  Company Number: DE-JNJFOC-20070504952

PATIENT
  Age: 27 Year
  Sex: Male
  Weight: 63 kg

DRUGS (2)
  1. REMICADE [Suspect]
     Indication: CROHN'S DISEASE
     Route: 042
  2. AZATHLOPRIN [Concomitant]

REACTIONS (1)
  - ECZEMA [None]
